FAERS Safety Report 18292804 (Version 1)
Quarter: 2020Q3

REPORT INFORMATION
  Report Type: Spontaneous
  Country: ES (occurrence: ES)
  Receive Date: 20200922
  Receipt Date: 20200922
  Transmission Date: 20201103
  Serious: Yes (Life-Threatening, Hospitalization)
  Sender: FDA-Public Use
  Company Number: ES-ACCORD-202044

PATIENT
  Age: 83 Year
  Sex: Female

DRUGS (5)
  1. SPIRONOLACTONE. [Interacting]
     Active Substance: SPIRONOLACTONE
     Indication: CARDIOMYOPATHY
     Dosage: UNIT DOSE FREQUENCY: 25 MG?MILLIGRAMS  DOSE PER INTAKE: 25 MGMILLIGRAMS
     Route: 048
     Dates: start: 20120227, end: 20160704
  2. FUROSEMIDE. [Suspect]
     Active Substance: FUROSEMIDE
     Indication: CARDIOMYOPATHY
     Dosage: UNIT DOSE FREQUENCY: 40 MG?MILLIGRAMS DOSE PER INTAKE: 40 MG MILLIGRAMS
     Route: 048
     Dates: start: 20090709, end: 20160704
  3. LISINOPRIL. [Concomitant]
     Active Substance: LISINOPRIL
     Indication: HYPERTENSION
     Dosage: UNIT DOSE FREQUENCY: 20 MG?MILLIGRAMS  DOSE PER INTAKE: 20 MGMILLIGRAMS
     Route: 048
     Dates: start: 201109
  4. TRAMADOL. [Interacting]
     Active Substance: TRAMADOL
     Indication: PAIN
     Dosage: FREQUENCY UNIT: 1 DAY
     Route: 048
     Dates: start: 20130528, end: 20160704
  5. ACLIDINIUM BROMIDE. [Concomitant]
     Active Substance: ACLIDINIUM BROMIDE
     Indication: CHRONIC OBSTRUCTIVE PULMONARY DISEASE
     Route: 048
     Dates: start: 20140108

REACTIONS (2)
  - Drug interaction [Unknown]
  - Inappropriate antidiuretic hormone secretion [Recovered/Resolved]

NARRATIVE: CASE EVENT DATE: 20160704
